FAERS Safety Report 21282768 (Version 5)
Quarter: 2023Q1

REPORT INFORMATION
  Report Type: Report from Study
  Country: US (occurrence: US)
  Receive Date: 20220901
  Receipt Date: 20230307
  Transmission Date: 20230417
  Serious: Yes (Other)
  Sender: FDA-Public Use
  Company Number: US-Horizon-PEN-0522-2019

PATIENT

DRUGS (2)
  1. PENNSAID [Suspect]
     Active Substance: DICLOFENAC SODIUM
     Indication: Osteoarthritis
     Dosage: 40 MG, BID (TAKE 2 PUMPS 2 TIMES A DAY)
     Route: 061
     Dates: start: 20200518
  2. PENNSAID [Suspect]
     Active Substance: DICLOFENAC SODIUM
     Indication: Arthralgia
     Dosage: 40 MG, BID (APPLY 2 PUMPS 2 TIMES A DAY AS DIRECTED BY PHYSICIAN)
     Route: 061
     Dates: start: 20200519

REACTIONS (28)
  - Hypersensitivity [Unknown]
  - Oropharyngeal discomfort [Unknown]
  - Rhinorrhoea [Unknown]
  - Rash [Unknown]
  - Skin exfoliation [Unknown]
  - Drug ineffective [Unknown]
  - Decubitus ulcer [Recovered/Resolved]
  - Poor peripheral circulation [Unknown]
  - Infection [Unknown]
  - Pain [Recovering/Resolving]
  - Ligament sprain [Unknown]
  - Foot deformity [Not Recovered/Not Resolved]
  - Knee deformity [Not Recovered/Not Resolved]
  - Nerve injury [Unknown]
  - Knee operation [Unknown]
  - Hip arthroplasty [Unknown]
  - Exostosis [Unknown]
  - Muscle spasms [Unknown]
  - Treatment noncompliance [Unknown]
  - Limb discomfort [Not Recovered/Not Resolved]
  - Incision site impaired healing [Not Recovered/Not Resolved]
  - Arthralgia [Unknown]
  - Device malfunction [Unknown]
  - Wrong technique in product usage process [Unknown]
  - Incorrect dose administered [Unknown]
  - Intentional device misuse [Unknown]
  - Nausea [Unknown]
  - Application site rash [Unknown]

NARRATIVE: CASE EVENT DATE: 20191201
